FAERS Safety Report 7075681-7 (Version None)
Quarter: 2010Q4

REPORT INFORMATION
  Report Type: 
  Country: None (occurrence: None)
  Receive Date: 20101031
  Receipt Date: 20101026
  Transmission Date: 20110411
  Serious: Yes (Other)
  Sender: FDA-Public Use
  Company Number: US-BRISTOL-MYERS SQUIBB COMPANY-15353410

PATIENT
  Age: 53 Year
  Sex: Female

DRUGS (2)
  1. ORENCIA [Suspect]
     Indication: RHEUMATOID ARTHRITIS
     Dosage: DOSE UP TO 2 YEARS.
  2. ARAVA [Concomitant]

REACTIONS (1)
  - GUILLAIN-BARRE SYNDROME [None]
